FAERS Safety Report 4867541-4 (Version None)
Quarter: 2005Q4

REPORT INFORMATION
  Report Type: 
  Country: None (occurrence: None)
  Receive Date: 20051222
  Receipt Date: 20051213
  Transmission Date: 20060501
  Serious: Yes (Death, Hospitalization)
  Sender: FDA-Public Use
  Company Number: US-2005-025467

PATIENT
  Age: 63 Year
  Sex: Female

DRUGS (1)
  1. BETASERON [Suspect]
     Indication: MULTIPLE SCLEROSIS
     Dosage: DOSE NOT PROVIDED, SUBCUTANEOUS
     Route: 058
     Dates: start: 19940328, end: 20051010

REACTIONS (2)
  - ANAEMIA [None]
  - PROGRESSIVE MULTIPLE SCLEROSIS [None]
